FAERS Safety Report 5303197-4 (Version None)
Quarter: 2007Q2

REPORT INFORMATION
  Report Type: 
  Country: None (occurrence: None)
  Receive Date: 20070420
  Receipt Date: 20070327
  Transmission Date: 20071010
  Serious: Yes (Hospitalization)
  Sender: FDA-Public Use
  Company Number: JP-ROCHE-490625

PATIENT
  Age: 28 Year
  Sex: Male

DRUGS (2)
  1. TAMIFLU [Suspect]
     Route: 048
     Dates: start: 20070305
  2. CALONAL [Concomitant]

REACTIONS (2)
  - ENCEPHALOPATHY [None]
  - HALLUCINATION [None]
